FAERS Safety Report 8524928-6 (Version None)
Quarter: 2012Q3

REPORT INFORMATION
  Report Type: 
  Country: None (occurrence: None)
  Receive Date: 20120720
  Receipt Date: 20120711
  Transmission Date: 20120928
  Serious: No
  Sender: FDA-Public Use
  Company Number: US-009507513-1207USA002828

PATIENT

DRUGS (3)
  1. RIBASPHERE [Suspect]
     Dosage: UNK
     Dates: start: 20120101
  2. PEGASYS [Suspect]
     Dosage: UNK
     Dates: start: 20120101
  3. VICTRELIS [Suspect]
     Indication: HEPATITIS C
     Dosage: 800 MG, TID
     Route: 048
     Dates: start: 20120301

REACTIONS (5)
  - RASH GENERALISED [None]
  - FATIGUE [None]
  - IRRITABILITY [None]
  - INFLUENZA LIKE ILLNESS [None]
  - CHILLS [None]
